FAERS Safety Report 6238895-1 (Version None)
Quarter: 2009Q2

REPORT INFORMATION
  Report Type: 
  Country: None (occurrence: None)
  Receive Date: 20090617
  Receipt Date: 20090617
  Transmission Date: 20091009
  Serious: Yes (Other)
  Sender: FDA-Public Use
  Company Number: None

PATIENT
  Age: 71 Year
  Sex: Male
  Weight: 79.8331 kg

DRUGS (1)
  1. PROSTAGLANDIN E1 20 MCG/ML UNKNOWN ? [Suspect]
     Dosage: ONCE
     Dates: start: 20090613, end: 20090613

REACTIONS (6)
  - BURNING SENSATION [None]
  - ERECTION INCREASED [None]
  - ERYTHEMA [None]
  - PENILE PAIN [None]
  - PENILE SWELLING [None]
  - PENIS DISORDER [None]
